FAERS Safety Report 7629272-7 (Version None)
Quarter: 2011Q3

REPORT INFORMATION
  Report Type: 
  Country: None (occurrence: None)
  Receive Date: 20110722
  Receipt Date: 20110718
  Transmission Date: 20111222
  Serious: Yes (Other)
  Sender: FDA-Public Use
  Company Number: US-PFIZER INC-2011140915

PATIENT
  Sex: Female
  Weight: 109 kg

DRUGS (3)
  1. LISINOPRIL [Concomitant]
     Indication: HYPERTENSION
     Dosage: 40 MG, 2X/DAY
  2. XALATAN [Suspect]
     Indication: GLAUCOMA
     Dosage: ONE DROP IN EACH EYE, AT BEDTIME
     Route: 031
     Dates: start: 20030101
  3. TIMOLOL [Concomitant]
     Indication: GLAUCOMA
     Dosage: ONE DROP IN EACH EYE, TWICE DAILY
     Dates: start: 20090101

REACTIONS (1)
  - INTRAOCULAR PRESSURE INCREASED [None]
